FAERS Safety Report 7670031-7 (Version None)
Quarter: 2011Q3

REPORT INFORMATION
  Report Type: 
  Country: None (occurrence: None)
  Receive Date: 20110808
  Receipt Date: 20110803
  Transmission Date: 20111222
  Serious: Yes (Hospitalization)
  Sender: FDA-Public Use
  Company Number: BR-GILEAD-2011-0038752

PATIENT
  Sex: Female
  Weight: 47.3 kg

DRUGS (11)
  1. VIREAD [Suspect]
     Indication: HIV INFECTION
     Dates: start: 20110405
  2. IBUPROFEN [Concomitant]
     Indication: ARTHRALGIA
     Dates: start: 20110325, end: 20110419
  3. LAMIVUDINE [Suspect]
     Indication: HIV INFECTION
     Dates: start: 20110405
  4. DIPYRONE [Concomitant]
     Indication: PAIN
  5. AMITRIPTYLINE HCL [Concomitant]
     Indication: ARTHRALGIA
     Dates: start: 20110404
  6. EFAVIRENZ [Suspect]
     Indication: HIV INFECTION
     Dates: start: 20110405
  7. VITAMIN B6 [Concomitant]
     Indication: NEUROPATHY PERIPHERAL
     Dates: start: 20110325
  8. METOCLOPRAMIDE [Concomitant]
     Indication: NAUSEA
     Dates: start: 20110208, end: 20110419
  9. RANITIDINE [Concomitant]
     Indication: NAUSEA
     Dates: start: 20110301, end: 20110419
  10. CLONAZEPAM [Concomitant]
     Indication: ANXIETY
     Dates: start: 20110301
  11. DIPYRONE [Concomitant]
     Indication: PYREXIA
     Dates: start: 20110208

REACTIONS (1)
  - LYMPHADENOPATHY [None]
